FAERS Safety Report 4298719-9 (Version None)
Quarter: 2004Q1

REPORT INFORMATION
  Report Type: 
  Country: None (occurrence: None)
  Receive Date: 20040126
  Receipt Date: 20031021
  Transmission Date: 20041129
  Serious: No
  Sender: FDA-Public Use
  Company Number: USA031050449

PATIENT
  Age: 11 Year
  Sex: Male
  Weight: 35 kg

DRUGS (1)
  1. STRATTERA [Suspect]
     Indication: ATTENTION DEFICIT/HYPERACTIVITY DISORDER
     Dosage: 40 MG/DAY
     Dates: start: 20030923, end: 20031021

REACTIONS (3)
  - AMNESIA [None]
  - DAYDREAMING [None]
  - FEELING ABNORMAL [None]
